FAERS Safety Report 4660184-7 (Version None)
Quarter: 2005Q2

REPORT INFORMATION
  Report Type: 
  Country: None (occurrence: None)
  Receive Date: 20050427
  Receipt Date: 20050223
  Transmission Date: 20051028
  Serious: No
  Sender: FDA-Public Use
  Company Number: 211575

PATIENT
  Age: 39 Year
  Sex: Male
  Weight: 81.6 kg

DRUGS (9)
  1. XOLAIR [Suspect]
     Indication: ASTHMA
     Dosage: 375 MG, Q2W, SUBCUTANEOUS
     Route: 058
     Dates: start: 20040527
  2. SINGULAIR [Concomitant]
  3. CYCLOBENZAPRINE HYDROCHLORIDE [Concomitant]
  4. NAPROXEN [Concomitant]
  5. DIAZEPAM [Concomitant]
  6. FLOVENT [Concomitant]
  7. SEREVENT DISKUS (SALMETEROL XINAFOATE) [Concomitant]
  8. ALBUTEROL INHALER (ALBUTEROL SULFATE, ALBUTEROL) [Concomitant]
  9. THEOPHYLLINE [Concomitant]

REACTIONS (2)
  - EPISTAXIS [None]
  - HEADACHE [None]
